FAERS Safety Report 24583289 (Version 1)
Quarter: 2024Q4

REPORT INFORMATION
  Report Type: Spontaneous
  Country: RS (occurrence: RS)
  Receive Date: 20241106
  Receipt Date: 20241106
  Transmission Date: 20250115
  Serious: Yes (Other)
  Sender: ROCHE
  Company Number: RS-ROCHE-10000120854

PATIENT
  Age: 64 Year
  Sex: Male

DRUGS (4)
  1. BEVACIZUMAB [Suspect]
     Active Substance: BEVACIZUMAB
     Indication: Adenocarcinoma
     Route: 065
     Dates: start: 20240813, end: 20241021
  2. TECENTRIQ [Suspect]
     Active Substance: ATEZOLIZUMAB
     Indication: Adenocarcinoma
     Route: 065
     Dates: start: 20240813, end: 20241021
  3. PACLITAXEL [Suspect]
     Active Substance: PACLITAXEL
     Indication: Adenocarcinoma
     Route: 065
     Dates: start: 20240813, end: 20241021
  4. PLATINUM [Suspect]
     Active Substance: PLATINUM
     Indication: Adenocarcinoma
     Route: 065
     Dates: start: 20240813, end: 20241021

REACTIONS (7)
  - Metastases to muscle [Unknown]
  - Metastases to central nervous system [Unknown]
  - Metastases to lung [Unknown]
  - Metastases to bone [Unknown]
  - Fatigue [Unknown]
  - Anaemia [Unknown]
  - Pyrexia [Unknown]
